FAERS Safety Report 19328745 (Version 1)
Quarter: 2021Q2

REPORT INFORMATION
  Report Type: Spontaneous
  Country: US (occurrence: US)
  Receive Date: 20210528
  Receipt Date: 20210528
  Transmission Date: 20210717
  Serious: No
  Sender: FDA-Public Use
  Company Number: US-GLAXOSMITHKLINE-US2021AMR108789

PATIENT
  Sex: Female
  Weight: 52.16 kg

DRUGS (1)
  1. MUPIROCIN. [Suspect]
     Active Substance: MUPIROCIN
     Indication: PRURITUS
     Dosage: UNK
     Route: 065

REACTIONS (1)
  - Drug ineffective [Unknown]
